FAERS Safety Report 5604127-8 (Version None)
Quarter: 2008Q1

REPORT INFORMATION
  Report Type: 
  Country: None (occurrence: None)
  Receive Date: 20080128
  Receipt Date: 20080124
  Transmission Date: 20080703
  Serious: Yes (Death, Other)
  Sender: FDA-Public Use
  Company Number: PHHY2008JP00939

PATIENT
  Age: 73 Year
  Sex: Female

DRUGS (6)
  1. ZOMETA [Suspect]
     Indication: METASTASIS
     Dosage: UNK, UNK
     Route: 042
     Dates: start: 20070501, end: 20071204
  2. IRESSA [Concomitant]
     Route: 048
  3. NORVASC [Concomitant]
     Route: 048
  4. CARBOPLATIN [Concomitant]
     Route: 048
     Dates: start: 20070501
  5. TAXOL [Concomitant]
     Route: 048
     Dates: start: 20070501
  6. LENDORMIN [Suspect]

REACTIONS (5)
  - BLOOD CREATININE INCREASED [None]
  - BLOOD UREA INCREASED [None]
  - DEHYDRATION [None]
  - DIARRHOEA [None]
  - RENAL FAILURE ACUTE [None]
